FAERS Safety Report 14415178 (Version 1)
Quarter: 2018Q1

REPORT INFORMATION
  Report Type: Spontaneous
  Country: US (occurrence: US)
  Receive Date: 20180118
  Receipt Date: 20180118
  Transmission Date: 20180509
  Serious: Yes (Hospitalization)
  Sender: FDA-Public Use
  Company Number: None

PATIENT
  Age: 65 Year
  Sex: Male
  Weight: 124.5 kg

DRUGS (1)
  1. WARFARIN [Suspect]
     Active Substance: WARFARIN
     Indication: ATRIAL FIBRILLATION
     Dosage: MG PO
     Route: 048

REACTIONS (4)
  - Gastric haemorrhage [None]
  - Anaemia [None]
  - Diverticulum [None]
  - Haemorrhoids [None]

NARRATIVE: CASE EVENT DATE: 20161206
